FAERS Safety Report 17926332 (Version 3)
Quarter: 2020Q4

REPORT INFORMATION
  Report Type: Spontaneous
  Country: US (occurrence: US)
  Receive Date: 20200622
  Receipt Date: 20201120
  Transmission Date: 20210113
  Serious: Yes (Life-Threatening, Hospitalization, Other)
  Sender: FDA-Public Use
  Company Number: US-BIOGEN-2020BI00886660

PATIENT
  Sex: Male

DRUGS (1)
  1. TYSABRI [Suspect]
     Active Substance: NATALIZUMAB
     Indication: MULTIPLE SCLEROSIS
     Dosage: INFUSED OVER 1 HOUR
     Route: 042

REACTIONS (10)
  - Pneumonia staphylococcal [Recovered/Resolved with Sequelae]
  - Cough [Unknown]
  - Pneumonia [Recovered/Resolved]
  - Hypertension [Unknown]
  - Coronary artery occlusion [Recovered/Resolved with Sequelae]
  - Traumatic lung injury [Not Recovered/Not Resolved]
  - Heart injury [Recovered/Resolved with Sequelae]
  - H1N1 influenza [Recovered/Resolved with Sequelae]
  - Septic shock [Recovered/Resolved]
  - Pleural effusion [Unknown]
